FAERS Safety Report 20483735 (Version 1)
Quarter: 2022Q1

REPORT INFORMATION
  Report Type: Spontaneous
  Country: LV (occurrence: LV)
  Receive Date: 20220217
  Receipt Date: 20220217
  Transmission Date: 20220423
  Serious: Yes (Death, Other)
  Sender: FDA-Public Use
  Company Number: LV-KRKA-LV2022K00668LIT

PATIENT
  Age: 55 Year
  Sex: Female

DRUGS (3)
  1. TRAMADOL HYDROCHLORIDE [Suspect]
     Active Substance: TRAMADOL HYDROCHLORIDE
     Indication: Perineal pain
     Dosage: UNK
     Route: 065
     Dates: start: 20191126
  2. DIAZEPAM [Suspect]
     Active Substance: DIAZEPAM
     Indication: Back pain
     Dosage: UNK
     Route: 065
     Dates: start: 20191126
  3. DIAZEPAM [Suspect]
     Active Substance: DIAZEPAM
     Indication: Perineal pain

REACTIONS (6)
  - Psychotic disorder [Fatal]
  - Panic attack [Fatal]
  - Claustrophobia [Unknown]
  - Dysphagia [Unknown]
  - Hydrophobia [Unknown]
  - Dyspnoea [Unknown]

NARRATIVE: CASE EVENT DATE: 20191127
